FAERS Safety Report 9297695 (Version 1)
Quarter: 2013Q2

REPORT INFORMATION
  Report Type: Spontaneous
  Country: US (occurrence: US)
  Receive Date: 20130520
  Receipt Date: 20130520
  Transmission Date: 20140414
  Serious: No
  Sender: FDA-Public Use
  Company Number: US-PFIZER INC-2013148523

PATIENT
  Age: 58 Year
  Sex: Male

DRUGS (6)
  1. SOMAVERT [Suspect]
     Indication: ACROMEGALY
     Dosage: 15 MG, 1X/DAY
     Route: 058
     Dates: start: 201203
  2. GLUCOPHAGE [Concomitant]
     Dosage: 500 MG, UNK
  3. LISINOPRIL [Concomitant]
     Dosage: 10 MG, UNK
  4. SIMVASTATIN [Concomitant]
     Dosage: 5 MG, UNK
  5. BAYER ASA [Concomitant]
     Dosage: 325 MG, UNK
  6. METAMUCIL [Concomitant]
     Dosage: 28 %, UNK

REACTIONS (1)
  - Abdominal discomfort [Unknown]
